FAERS Safety Report 12735400 (Version 1)
Quarter: 2016Q3

REPORT INFORMATION
  Report Type: Spontaneous
  Country: JP (occurrence: JP)
  Receive Date: 20160912
  Receipt Date: 20160912
  Transmission Date: 20161109
  Serious: Yes (Hospitalization)
  Sender: FDA-Public Use
  Company Number: JP-BAYER-2016-170944

PATIENT
  Age: 69 Year
  Sex: Female

DRUGS (1)
  1. ACETYLSALICYLIC ACID({=100 MG) [Suspect]
     Active Substance: ASPIRIN
     Indication: ANTIPLATELET THERAPY
     Dosage: UNK
     Route: 048

REACTIONS (13)
  - Subcutaneous haematoma [None]
  - Mucosal haemorrhage [None]
  - Laryngeal oedema [Recovered/Resolved]
  - Dyspnoea [None]
  - Dysphonia [None]
  - Tracheal deviation [None]
  - Laryngeal oedema [None]
  - Contusion [None]
  - Depressed level of consciousness [None]
  - Thyroid disorder [None]
  - Tracheal stenosis [None]
  - Fall [None]
  - Laryngeal disorder [None]
